FAERS Safety Report 9601906 (Version 4)
Quarter: 2013Q4

REPORT INFORMATION
  Report Type: Spontaneous
  Country: FR (occurrence: FR)
  Receive Date: 20131007
  Receipt Date: 20131118
  Transmission Date: 20140711
  Serious: Yes (Death, Hospitalization)
  Sender: FDA-Public Use
  Company Number: FR-JNJFOC-20131002693

PATIENT
  Age: 76 Year
  Sex: Male

DRUGS (3)
  1. XARELTO [Suspect]
     Indication: THROMBOSIS PROPHYLAXIS
     Route: 048
     Dates: start: 201309
  2. XARELTO [Suspect]
     Indication: DEEP VEIN THROMBOSIS
     Route: 048
     Dates: start: 201309
  3. AMIODARONE [Concomitant]
     Route: 065

REACTIONS (6)
  - Ischaemic stroke [Fatal]
  - Haemorrhagic stroke [Fatal]
  - Peripheral ischaemia [Unknown]
  - Transient ischaemic attack [Unknown]
  - Malaise [Unknown]
  - Drug ineffective [Unknown]
